FAERS Safety Report 19286781 (Version 1)
Quarter: 2021Q2

REPORT INFORMATION
  Report Type: Spontaneous
  Country: US (occurrence: US)
  Receive Date: 20210521
  Receipt Date: 20210521
  Transmission Date: 20210717
  Serious: No
  Sender: FDA-Public Use
  Company Number: US-RADIUS HEALTH INC.-2020US002982

PATIENT
  Age: 31 Year
  Sex: Female

DRUGS (1)
  1. TYMLOS [Suspect]
     Active Substance: ABALOPARATIDE
     Indication: PRODUCT USED FOR UNKNOWN INDICATION
     Dosage: 80 MCG, QD
     Route: 058
     Dates: start: 202009

REACTIONS (7)
  - Paraesthesia [Unknown]
  - Diarrhoea [Unknown]
  - Weight decreased [Unknown]
  - Migraine [Unknown]
  - Vertigo [Unknown]
  - Product administered to patient of inappropriate age [Unknown]
  - Bone pain [Unknown]

NARRATIVE: CASE EVENT DATE: 202009
